FAERS Safety Report 9177357 (Version 3)
Quarter: 2013Q2

REPORT INFORMATION
  Report Type: Spontaneous
  Country: GB (occurrence: None)
  Receive Date: 20130319
  Receipt Date: 20130611
  Transmission Date: 20140414
  Serious: Yes (Hospitalization, Other)
  Sender: FDA-Public Use
  Company Number: AUR-APL-2013-02203

PATIENT
  Age: 52 Year
  Sex: Male

DRUGS (4)
  1. RIBAVIRIN [Suspect]
     Indication: HEPATITIS C
     Dates: start: 20131123
  2. INCIVO [Suspect]
     Indication: HEPATITIS C
     Dosage: 2250 MG (750 MG, 3 IN 1 D)
     Route: 048
     Dates: start: 20121123, end: 20121210
  3. PEGASYS (PEGINTERFERON ALFA-2A) [Suspect]
     Indication: HEPATITIS C
     Dosage: 25.7143 UG (180 UG,1 IN 1 WK)
     Dates: start: 20121123
  4. TACROLIMUS [Concomitant]

REACTIONS (6)
  - Rash [None]
  - Psoriasis [None]
  - Off label use [None]
  - Drug resistance [None]
  - Ill-defined disorder [None]
  - Liver transplant [None]
